FAERS Safety Report 13063344 (Version 8)
Quarter: 2017Q2

REPORT INFORMATION
  Report Type: Report from Study
  Country: BR (occurrence: BR)
  Receive Date: 20161227
  Receipt Date: 20170407
  Transmission Date: 20170830
  Serious: Yes (Hospitalization)
  Sender: FDA-Public Use
  Company Number: BR-ROCHE-1864794

PATIENT
  Age: 84 Year
  Sex: Female

DRUGS (76)
  1. ACP-196 [Suspect]
     Active Substance: ACALABRUTINIB
     Indication: CHRONIC LYMPHOCYTIC LEUKAEMIA
     Dosage: AT 11:20
     Route: 048
     Dates: start: 20161027
  2. RANITIDIN [Concomitant]
     Active Substance: RANITIDINE HYDROCHLORIDE
     Indication: GASTRITIS
     Route: 065
     Dates: start: 20161006
  3. RANITIDIN [Concomitant]
     Active Substance: RANITIDINE HYDROCHLORIDE
     Route: 065
     Dates: start: 20170110, end: 20170121
  4. DIPIRONE [Concomitant]
     Active Substance: METAMIZOLE SODIUM
     Indication: UPPER RESPIRATORY TRACT INFECTION
     Route: 065
     Dates: start: 20161031, end: 20161031
  5. PAROXETINE. [Concomitant]
     Active Substance: PAROXETINE
     Indication: DEPRESSION
     Route: 065
     Dates: start: 2010
  6. DEXAMETHASONE. [Concomitant]
     Active Substance: DEXAMETHASONE
     Route: 065
     Dates: start: 20160105, end: 20160105
  7. DIPHENHYDRAMINE. [Concomitant]
     Active Substance: DIPHENHYDRAMINE
     Route: 065
     Dates: start: 20161202, end: 20161202
  8. ISOSORBIDE MONONITRATE. [Concomitant]
     Active Substance: ISOSORBIDE MONONITRATE
     Indication: CARDIAC FAILURE CHRONIC
     Route: 065
     Dates: start: 20161222
  9. LUFTAL (BRAZIL) [Concomitant]
     Route: 065
     Dates: start: 20170110, end: 20170121
  10. DOMPERIDONA [Concomitant]
     Indication: GASTRITIS
     Route: 065
     Dates: start: 20161222, end: 20170110
  11. OMEPRAZOLE. [Concomitant]
     Active Substance: OMEPRAZOLE
     Route: 065
     Dates: start: 20161208, end: 20161209
  12. POTASSIUM CHLORIDE. [Concomitant]
     Active Substance: POTASSIUM CHLORIDE
     Route: 065
     Dates: start: 20170111, end: 20170112
  13. METILPREDNISOLONE [Concomitant]
     Active Substance: METHYLPREDNISOLONE
     Indication: HYPOTENSION
     Route: 065
     Dates: start: 20161124, end: 20161124
  14. AMILORIDE [Concomitant]
     Active Substance: AMILORIDE
     Indication: HYPERTENSION
     Route: 065
     Dates: start: 2000
  15. ALLOPURINOL. [Concomitant]
     Active Substance: ALLOPURINOL
     Indication: PROPHYLAXIS
     Route: 065
     Dates: start: 20161118
  16. ALLOPURINOL. [Concomitant]
     Active Substance: ALLOPURINOL
     Route: 065
     Dates: start: 20170121, end: 201701
  17. SLOW K [Concomitant]
     Active Substance: POTASSIUM CHLORIDE
     Indication: HYPOKALAEMIA
     Route: 065
     Dates: start: 20161215, end: 20161219
  18. MOTILIUM [Concomitant]
     Active Substance: DOMPERIDONE
     Indication: GASTRITIS
     Route: 065
     Dates: start: 20161208, end: 20161222
  19. BUSCOPAN [Concomitant]
     Active Substance: BUTYLSCOPOLAMINE BROMIDE
     Route: 065
     Dates: start: 20170111, end: 20170121
  20. ANTAK [Concomitant]
     Active Substance: RANITIDINE HYDROCHLORIDE
     Indication: GASTRITIS
     Route: 065
     Dates: start: 20161209, end: 20161222
  21. POTASSIUM CHLORIDE. [Concomitant]
     Active Substance: POTASSIUM CHLORIDE
     Route: 065
     Dates: start: 20170117, end: 20170121
  22. ATROVENT [Concomitant]
     Active Substance: IPRATROPIUM BROMIDE
     Indication: BRONCHOSPASM
     Route: 065
     Dates: start: 20170110, end: 20170121
  23. SIMVASTATIN. [Concomitant]
     Active Substance: SIMVASTATIN
     Indication: DYSLIPIDAEMIA
     Route: 065
     Dates: start: 20161204, end: 20161221
  24. DOMPERIDONA [Concomitant]
     Route: 065
     Dates: start: 20170110, end: 20170121
  25. PIPERACILLIN/TAZOBACTAM [Concomitant]
     Active Substance: PIPERACILLIN SODIUM\TAZOBACTAM SODIUM
     Indication: DEVICE RELATED INFECTION
     Route: 065
     Dates: start: 20161204
  26. TAZOBACTAM [Concomitant]
     Active Substance: TAZOBACTAM
     Route: 065
     Dates: start: 20170113, end: 20170115
  27. ERTAPENEM [Concomitant]
     Active Substance: ERTAPENEM
     Indication: PERITONITIS BACTERIAL
     Route: 065
     Dates: start: 20170116, end: 20170120
  28. OBINUTUZUMAB [Suspect]
     Active Substance: OBINUTUZUMAB
     Route: 042
     Dates: start: 20161202
  29. DIPHENHYDRAMINE. [Concomitant]
     Active Substance: DIPHENHYDRAMINE
     Dosage: ONE TIME ONLY?/NOV/2016 TO 24/NOV/2016
     Route: 065
     Dates: end: 20161124
  30. AROPAX [Concomitant]
     Active Substance: PAROXETINE HYDROCHLORIDE
     Indication: DEPRESSION
     Route: 065
     Dates: start: 20161204, end: 20161221
  31. METICORTEN [Concomitant]
     Active Substance: PREDNISONE
     Indication: COUGH
     Route: 065
     Dates: start: 20161210, end: 20161210
  32. OMEPRAZOLE. [Concomitant]
     Active Substance: OMEPRAZOLE
     Indication: GASTRITIS
     Route: 065
     Dates: start: 20161205, end: 20161207
  33. POTASSIUM CHLORIDE. [Concomitant]
     Active Substance: POTASSIUM CHLORIDE
     Dosage: ONE TIME ONLY
     Route: 065
     Dates: start: 20161218, end: 20161219
  34. LACTULOSE. [Concomitant]
     Active Substance: LACTULOSE
     Dosage: /JAN/2017 TO 21/JAN/2017
     Route: 065
     Dates: end: 20170121
  35. CARVEDILOL. [Concomitant]
     Active Substance: CARVEDILOL
     Route: 065
     Dates: start: 20161221, end: 20161222
  36. BEROTEC [Concomitant]
     Active Substance: FENOTEROL HYDROBROMIDE
     Indication: BRONCHOSPASM
     Route: 065
     Dates: start: 20170110, end: 20170121
  37. DEXAMETHASONE. [Concomitant]
     Active Substance: DEXAMETHASONE
     Route: 065
     Dates: start: 20161202, end: 20161202
  38. ALLOPURINOL. [Concomitant]
     Active Substance: ALLOPURINOL
     Route: 065
     Dates: start: 2010
  39. ISOSORBIDE MONONITRATE. [Concomitant]
     Active Substance: ISOSORBIDE MONONITRATE
     Route: 065
     Dates: start: 201612, end: 20170110
  40. HYDROCHLOROTHIAZIDE. [Concomitant]
     Active Substance: HYDROCHLOROTHIAZIDE
     Indication: HYPERTENSION
     Route: 065
     Dates: start: 2000, end: 20161204
  41. FLUIMUCIL [Concomitant]
     Active Substance: ACETYLCYSTEINE
     Indication: COUGH
     Route: 065
     Dates: start: 20161210, end: 20161222
  42. FLUIMUCIL [Concomitant]
     Active Substance: ACETYLCYSTEINE
     Indication: BRONCHOSPASM
     Route: 065
     Dates: start: 20170110, end: 20170121
  43. BUSCOPAN [Concomitant]
     Active Substance: BUTYLSCOPOLAMINE BROMIDE
     Indication: GASTRITIS
     Route: 065
     Dates: start: 20161221, end: 20161221
  44. BUSCOPAN [Concomitant]
     Active Substance: BUTYLSCOPOLAMINE BROMIDE
     Route: 065
     Dates: start: 20161205, end: 20161205
  45. DOMPERIDONA [Concomitant]
     Dosage: /DEC/2016 TO
     Route: 065
     Dates: start: 201612, end: 20170110
  46. POTASSIUM CHLORIDE. [Concomitant]
     Active Substance: POTASSIUM CHLORIDE
     Indication: ELECTROLYTE SUBSTITUTION THERAPY
     Route: 065
     Dates: start: 20161222, end: 20170110
  47. POTASSIUM CHLORIDE. [Concomitant]
     Active Substance: POTASSIUM CHLORIDE
     Indication: HYPOKALAEMIA
     Route: 065
     Dates: start: 20170117, end: 20170121
  48. POTASSIUM CHLORIDE. [Concomitant]
     Active Substance: POTASSIUM CHLORIDE
     Route: 065
     Dates: start: 20170115, end: 20170116
  49. POTASSIUM CHLORIDE. [Concomitant]
     Active Substance: POTASSIUM CHLORIDE
     Dosage: 6 % SYRUP
     Route: 065
     Dates: start: 20170113, end: 20170115
  50. LACTULOSE. [Concomitant]
     Active Substance: LACTULOSE
     Indication: CONSTIPATION
     Route: 065
     Dates: start: 20161221, end: 20161221
  51. OBINUTUZUMAB [Suspect]
     Active Substance: OBINUTUZUMAB
     Indication: CHRONIC LYMPHOCYTIC LEUKAEMIA
     Dosage: START TIME AT 10:33, STOP TIME-15:48
     Route: 042
     Dates: start: 20161124
  52. LOSARTAN. [Concomitant]
     Active Substance: LOSARTAN
     Indication: HYPERTENSION
     Route: 065
     Dates: start: 2000, end: 20161214
  53. PANTOZOL (BRAZIL) [Concomitant]
     Indication: GASTRITIS
     Route: 065
     Dates: start: 20161211, end: 20161213
  54. SIMVASTATIN. [Concomitant]
     Active Substance: SIMVASTATIN
     Route: 065
     Dates: start: 2000
  55. SLOW K [Concomitant]
     Active Substance: POTASSIUM CHLORIDE
     Indication: HYPOGLYCAEMIA
     Route: 065
     Dates: start: 20161213, end: 20161214
  56. SLOW K [Concomitant]
     Active Substance: POTASSIUM CHLORIDE
     Route: 065
     Dates: start: 20161220, end: 20161222
  57. POTASSIUM CHLORIDE. [Concomitant]
     Active Substance: POTASSIUM CHLORIDE
     Route: 065
     Dates: start: 20170112, end: 201701
  58. PARACETAMOL [Concomitant]
     Active Substance: ACETAMINOPHEN
     Route: 065
     Dates: start: 20161202, end: 20161202
  59. PARACETAMOL [Concomitant]
     Active Substance: ACETAMINOPHEN
     Dosage: FREQUECY : OTHER.
     Route: 048
     Dates: start: 20160105, end: 20160105
  60. SIMVASTATIN. [Concomitant]
     Active Substance: SIMVASTATIN
     Route: 065
     Dates: start: 20170120, end: 201701
  61. LUFTAL (BRAZIL) [Concomitant]
     Route: 065
     Dates: start: 20161222
  62. SODIUM CHLORIDE. [Concomitant]
     Active Substance: SODIUM CHLORIDE
     Indication: HYPOCALCAEMIA
     Dosage: ONLE TIME ONLY
     Route: 065
     Dates: start: 20161218, end: 20161219
  63. CARVEDILOL. [Concomitant]
     Active Substance: CARVEDILOL
     Indication: CARDIAC FAILURE CHRONIC
     Route: 065
     Dates: start: 20161222, end: 20170110
  64. PAROXETINE. [Concomitant]
     Active Substance: PAROXETINE
     Route: 065
     Dates: start: 20170110, end: 20170120
  65. DEXAMETHASONE. [Concomitant]
     Active Substance: DEXAMETHASONE
     Indication: INFUSION RELATED REACTION
     Route: 065
     Dates: start: 20161124, end: 20161124
  66. DIPHENHYDRAMINE. [Concomitant]
     Active Substance: DIPHENHYDRAMINE
     Indication: PROPHYLAXIS
     Dosage: ONE TIME ONLY
     Route: 065
     Dates: start: 20161124, end: 20161124
  67. DIPHENHYDRAMINE. [Concomitant]
     Active Substance: DIPHENHYDRAMINE
     Route: 065
     Dates: start: 20160105, end: 20160105
  68. PARACETAMOL [Concomitant]
     Active Substance: ACETAMINOPHEN
     Indication: INFUSION RELATED REACTION
     Route: 065
     Dates: start: 20161124, end: 20161124
  69. LUFTAL (BRAZIL) [Concomitant]
     Indication: GASTRITIS
     Route: 065
     Dates: start: 20161207, end: 20161222
  70. MODURETIC 5-50 [Concomitant]
     Active Substance: AMILORIDE HYDROCHLORIDE\HYDROCHLOROTHIAZIDE
     Indication: HYPERTENSION
     Route: 065
     Dates: start: 20161205, end: 20161213
  71. CARDILOL [Concomitant]
     Active Substance: CARVEDILOL
     Indication: OESOPHAGEAL VARICES HAEMORRHAGE
     Route: 065
     Dates: start: 20161221, end: 20161222
  72. MONOCORDIL [Concomitant]
     Active Substance: ISOSORBIDE MONONITRATE
     Indication: CARDIAC FAILURE CHRONIC
     Route: 065
     Dates: start: 20161214, end: 20161222
  73. MONOCORDIL [Concomitant]
     Active Substance: ISOSORBIDE MONONITRATE
     Route: 065
     Dates: start: 20170110, end: 20170121
  74. OMEPRAZOLE. [Concomitant]
     Active Substance: OMEPRAZOLE
     Dosage: /DEC/2016 TO 09/DEC/2016
     Route: 065
     Dates: end: 20161209
  75. CARVEDILOL. [Concomitant]
     Active Substance: CARVEDILOL
     Indication: OESOPHAGEAL VARICES HAEMORRHAGE
     Route: 065
     Dates: start: 20170112, end: 20170118
  76. CARVEDILOL. [Concomitant]
     Active Substance: CARVEDILOL
     Route: 065
     Dates: start: 20170119, end: 20170121

REACTIONS (4)
  - Gastrointestinal haemorrhage [Recovered/Resolved]
  - Ascites [Recovered/Resolved]
  - Device related infection [Recovered/Resolved]
  - Gastrointestinal haemorrhage [Recovered/Resolved]

NARRATIVE: CASE EVENT DATE: 20161204
